FAERS Safety Report 8318766-7 (Version None)
Quarter: 2012Q2

REPORT INFORMATION
  Report Type: 
  Country: None (occurrence: None)
  Receive Date: 20120427
  Receipt Date: 20120417
  Transmission Date: 20120825
  Serious: Yes (Other)
  Sender: FDA-Public Use
  Company Number: US-ABBOTT-12P-163-0926787-00

PATIENT
  Sex: Male
  Weight: 113.5 kg

DRUGS (14)
  1. FISH OIL [Concomitant]
     Indication: CARDIAC DISORDER
  2. PLAVIX [Concomitant]
     Indication: CARDIAC DISORDER
  3. DAILY VITAMINS [Concomitant]
     Indication: PRODUCT USED FOR UNKNOWN INDICATION
  4. GLUCOTROL XL [Concomitant]
     Indication: DIABETES MELLITUS
  5. SLEEPING PILL [Concomitant]
     Indication: PRODUCT USED FOR UNKNOWN INDICATION
  6. ASCORBIC ACID [Concomitant]
     Indication: PRODUCT USED FOR UNKNOWN INDICATION
     Dosage: DAILY
  7. ARAVA [Concomitant]
     Indication: RHEUMATOID ARTHRITIS
  8. HUMIRA [Suspect]
     Indication: RHEUMATOID ARTHRITIS
  9. BISOPROLOL FUMARATE [Concomitant]
     Indication: CARDIAC DISORDER
  10. NIASPAN [Concomitant]
     Indication: CARDIAC DISORDER
  11. ASPIRIN [Concomitant]
     Indication: CARDIAC DISORDER
  12. LAXATIVES [Concomitant]
     Indication: PRODUCT USED FOR UNKNOWN INDICATION
  13. LEXAPRO [Concomitant]
     Indication: CARDIAC DISORDER
  14. LIPITOR [Concomitant]
     Indication: CARDIAC DISORDER

REACTIONS (1)
  - DEVICE FAILURE [None]
